FAERS Safety Report 10996883 (Version 1)
Quarter: 2015Q2

REPORT INFORMATION
  Report Type: Spontaneous
  Country: FR (occurrence: FR)
  Receive Date: 20150408
  Receipt Date: 20150408
  Transmission Date: 20150821
  Serious: Yes (Hospitalization)
  Sender: FDA-Public Use
  Company Number: FR-JNJFOC-20150320746

PATIENT
  Age: 51 Year
  Sex: Female

DRUGS (18)
  1. ONDANSETRON [Concomitant]
     Active Substance: ONDANSETRON
     Route: 042
     Dates: start: 20150116
  2. BLEOMYCIN [Concomitant]
     Active Substance: BLEOMYCIN SULFATE
     Route: 042
     Dates: start: 20150116
  3. METHYLPREDNISOLONE. [Concomitant]
     Active Substance: METHYLPREDNISOLONE
     Route: 065
  4. ZELITREX [Concomitant]
     Active Substance: VALACYCLOVIR HYDROCHLORIDE
     Route: 065
     Dates: start: 201501
  5. BACTRIM [Concomitant]
     Active Substance: SULFAMETHOXAZOLE\TRIMETHOPRIM
     Route: 065
     Dates: start: 201501
  6. DACARBAZINE MEDAC [Concomitant]
     Route: 042
     Dates: start: 20150116
  7. VIREAD [Concomitant]
     Active Substance: TENOFOVIR DISOPROXIL FUMARATE
     Route: 048
  8. INEXIUM [Concomitant]
     Active Substance: ESOMEPRAZOLE
     Route: 042
     Dates: start: 20150219
  9. GRANOCYTE [Concomitant]
     Active Substance: LENOGRASTIM
     Route: 042
     Dates: start: 20150131, end: 20150202
  10. GRANOCYTE [Concomitant]
     Active Substance: LENOGRASTIM
     Route: 042
     Dates: start: 20150214, end: 20150216
  11. EDURANT [Suspect]
     Active Substance: RILPIVIRINE HYDROCHLORIDE
     Indication: HIV INFECTION
     Route: 048
     Dates: start: 201501, end: 201503
  12. POLARAMIN [Concomitant]
     Active Substance: DEXCHLORPHENIRAMINE MALEATE
     Route: 042
     Dates: start: 20150116
  13. GRANOCYTE [Concomitant]
     Active Substance: LENOGRASTIM
     Route: 042
     Dates: start: 20150117, end: 20150121
  14. DOXORUBICIN HYDROCHLORIDE. [Concomitant]
     Active Substance: DOXORUBICIN HYDROCHLORIDE
     Route: 042
     Dates: start: 20150116
  15. TIVICAY [Concomitant]
     Active Substance: DOLUTEGRAVIR SODIUM
     Indication: HODGKIN^S DISEASE
     Route: 048
     Dates: start: 201501
  16. VELBE [Suspect]
     Active Substance: VINBLASTINE SULFATE
     Indication: HIV INFECTION
     Route: 048
     Dates: start: 20150116, end: 201503
  17. LEDERFOLINE [Concomitant]
     Active Substance: LEUCOVORIN CALCIUM
     Route: 065
     Dates: start: 201501
  18. CELECTOL [Concomitant]
     Active Substance: CELIPROLOL HYDROCHLORIDE
     Route: 065

REACTIONS (2)
  - Constipation [Not Recovered/Not Resolved]
  - Bone marrow failure [Recovering/Resolving]

NARRATIVE: CASE EVENT DATE: 20150219
